FAERS Safety Report 6412956-6 (Version None)
Quarter: 2009Q4

REPORT INFORMATION
  Report Type: 
  Country: None (occurrence: None)
  Receive Date: 20091023
  Receipt Date: 20091015
  Transmission Date: 20100525
  Serious: Yes (Other)
  Sender: FDA-Public Use
  Company Number: FR-WATSON-2009-08686

PATIENT
  Age: 55 Year
  Sex: Female

DRUGS (3)
  1. PREDNISONE (WATSON LABORATORIES) [Suspect]
     Indication: DERMATOMYOSITIS
     Dosage: 1 - 15 MG/KG/DAY
     Dates: start: 19970101
  2. METHOTREXATE [Suspect]
     Indication: DERMATOMYOSITIS
     Dosage: 15 -20 MG, 1/WEEK
     Dates: start: 19980101
  3. AZATHIOPRINE [Suspect]
     Indication: DERMATOMYOSITIS
     Dosage: 150 MG, DAILY
     Dates: start: 20020101

REACTIONS (2)
  - EPSTEIN-BARR VIRUS INFECTION [None]
  - LYMPHOPROLIFERATIVE DISORDER [None]
